FAERS Safety Report 4732519-8 (Version None)
Quarter: 2005Q3

REPORT INFORMATION
  Report Type: 
  Country: None (occurrence: None)
  Receive Date: 20050803
  Receipt Date: 20041203
  Transmission Date: 20060218
  Serious: Yes (Other)
  Sender: FDA-Public Use
  Company Number: GB-GLAXOSMITHKLINE-B0359494A

PATIENT
  Sex: Female

DRUGS (1)
  1. SEROXAT [Suspect]
     Route: 065
     Dates: start: 19970916, end: 20040201

REACTIONS (5)
  - COMPLETED SUICIDE [None]
  - DEPRESSED MOOD [None]
  - ILL-DEFINED DISORDER [None]
  - PANIC REACTION [None]
  - TEARFULNESS [None]
